FAERS Safety Report 21453763 (Version 1)
Quarter: 2022Q4

REPORT INFORMATION
  Report Type: Spontaneous
  Country: US (occurrence: PR)
  Receive Date: 20221013
  Receipt Date: 20221013
  Transmission Date: 20230113
  Serious: Yes (Death, Hospitalization, Other)
  Sender: FDA-Public Use
  Company Number: US-BRISTOL-MYERS SQUIBB COMPANY-2022-116406

PATIENT
  Age: 87 Year
  Sex: Female

DRUGS (7)
  1. REVLIMID [Suspect]
     Active Substance: LENALIDOMIDE
     Indication: Plasma cell myeloma
     Dosage: FREQUENCY : ONCE DAILY FOR 21 DAYS AND 7 DAYS OFF
     Route: 048
     Dates: start: 202103
  2. DEXAMETHASONE [Concomitant]
     Active Substance: DEXAMETHASONE
     Indication: Product used for unknown indication
     Route: 065
  3. INTEGRA PLUS [Concomitant]
     Active Substance: ASCORBIC ACID\BIOTIN\CALCIUM PANTOTHENATE\FERROUS ASPARTO GLYCINATE\FERROUS FUMARATE\FOLIC ACID\NIAC
     Indication: Product used for unknown indication
     Route: 065
  4. DILTIAZEM [Concomitant]
     Active Substance: DILTIAZEM
     Indication: Product used for unknown indication
     Route: 065
  5. CHOLECALCIFEROL [Concomitant]
     Active Substance: CHOLECALCIFEROL
     Indication: Product used for unknown indication
     Route: 065
  6. PRADAXA [Concomitant]
     Active Substance: DABIGATRAN ETEXILATE MESYLATE
     Indication: Product used for unknown indication
     Route: 065
  7. DIGOXIN [Concomitant]
     Active Substance: DIGOXIN
     Indication: Product used for unknown indication
     Route: 065

REACTIONS (1)
  - Death [Fatal]

NARRATIVE: CASE EVENT DATE: 20220912
